FAERS Safety Report 9674543 (Version 1)
Quarter: 2013Q4

REPORT INFORMATION
  Report Type: Spontaneous
  Country: US (occurrence: None)
  Receive Date: 20131105
  Receipt Date: 20131105
  Transmission Date: 20140711
  Serious: Yes (Other)
  Sender: FDA-Public Use
  Company Number: None

PATIENT
  Sex: Male
  Weight: 86.18 kg

DRUGS (2)
  1. SIMVASTATIN [Suspect]
     Indication: HYPERLIPIDAEMIA
     Dosage: 1 TAB  DAILY  P.O.
     Route: 048
  2. CRESTOR [Suspect]
     Dosage: 1 TAB  DAILY  P.O.
     Route: 048

REACTIONS (1)
  - Myalgia [None]
